FAERS Safety Report 8234621-5 (Version None)
Quarter: 2012Q1

REPORT INFORMATION
  Report Type: 
  Country: None (occurrence: None)
  Receive Date: 20120321
  Receipt Date: 20120307
  Transmission Date: 20120608
  Serious: Yes (Hospitalization, Other)
  Sender: FDA-Public Use
  Company Number: 2009AL004344

PATIENT
  Sex: Female
  Weight: 58.9676 kg

DRUGS (15)
  1. DIGOXIN [Suspect]
     Indication: ARRHYTHMIA
     Dosage: 0.125 MG;QD;PO
     Route: 048
     Dates: start: 20031001, end: 20031217
  2. TERAZOL 1 [Concomitant]
  3. METHYLPREDNISOLONE [Concomitant]
  4. AUGMENTIN [Concomitant]
  5. MEDROL [Concomitant]
  6. ALREX [Concomitant]
  7. IBUPROFEN [Concomitant]
  8. NUTRINATE [Concomitant]
  9. PRECARE [Concomitant]
  10. HYDROCODONE BITARTRATE AND ACETAMINOPHEN [Concomitant]
  11. AMOXICILLIN [Concomitant]
  12. NEXIUM [Concomitant]
  13. VALTREX [Concomitant]
  14. FERROUS SULFATE TAB [Concomitant]
  15. ASPIRIN [Concomitant]

REACTIONS (22)
  - SURGERY [None]
  - BRADYCARDIA [None]
  - CHEST DISCOMFORT [None]
  - MITRAL VALVE PROLAPSE [None]
  - ANXIETY [None]
  - MULTIPLE INJURIES [None]
  - MITRAL VALVE INCOMPETENCE [None]
  - AORTIC VALVE INCOMPETENCE [None]
  - CHEST PAIN [None]
  - ECONOMIC PROBLEM [None]
  - PALPITATIONS [None]
  - BLOOD PRESSURE DECREASED [None]
  - CONDUCTION DISORDER [None]
  - PULMONARY VALVE INCOMPETENCE [None]
  - CARDIAC DISORDER [None]
  - DIZZINESS [None]
  - ORTHOPNOEA [None]
  - TRANSIENT ISCHAEMIC ATTACK [None]
  - PERICARDIAL EFFUSION [None]
  - HEART RATE INCREASED [None]
  - TRICUSPID VALVE INCOMPETENCE [None]
  - ASTHENIA [None]
